FAERS Safety Report 9349120 (Version 1)
Quarter: 2013Q2

REPORT INFORMATION
  Report Type: Spontaneous
  Country: US (occurrence: US)
  Receive Date: 20130614
  Receipt Date: 20130614
  Transmission Date: 20140414
  Serious: No
  Sender: FDA-Public Use
  Company Number: US-009507513-1306USA003539

PATIENT
  Sex: Female

DRUGS (2)
  1. ZETIA [Suspect]
     Indication: LOW DENSITY LIPOPROTEIN INCREASED
     Dosage: 10 MG, FREQUENCY UNSPECIFIED
     Route: 048
  2. ATORVASTATIN [Concomitant]

REACTIONS (1)
  - Myalgia [Recovered/Resolved]
